FAERS Safety Report 4932680-6 (Version None)
Quarter: 2006Q1

REPORT INFORMATION
  Report Type: 
  Country: None (occurrence: None)
  Receive Date: 20060301
  Receipt Date: 20060216
  Transmission Date: 20060701
  Serious: Yes (Other)
  Sender: FDA-Public Use
  Company Number: 200610190BFR

PATIENT
  Age: 65 Year
  Sex: Female

DRUGS (6)
  1. ACARBOSE [Suspect]
     Indication: DIABETES MELLITUS
     Dosage: 150 MG DAILY ORAL
     Route: 048
     Dates: start: 20040101
  2. ACARBOSE [Suspect]
     Indication: DIABETES MELLITUS
     Dosage: 150 MG DAILY ORAL
     Route: 048
     Dates: start: 20040101
  3. GLUCOVANCE [Concomitant]
  4. COAPROVEL [Concomitant]
  5. DETENSIEL [Concomitant]
  6. VASTAREL [Concomitant]

REACTIONS (6)
  - HEADACHE [None]
  - HYPERTENSION [None]
  - MALAISE [None]
  - PHARMACEUTICAL PRODUCT COMPLAINT [None]
  - VERTIGO [None]
  - VOMITING [None]
